FAERS Safety Report 9084848 (Version 1)
Quarter: 2013Q1

REPORT INFORMATION
  Report Type: Spontaneous
  Country: PR (occurrence: PR)
  Receive Date: 20130130
  Receipt Date: 20130130
  Transmission Date: 20140127
  Serious: No
  Sender: FDA-Public Use
  Company Number: PR-ABBOTT-12P-131-0990645-00

PATIENT
  Age: 58 Year
  Sex: Female
  Weight: 113.5 kg

DRUGS (11)
  1. HUMIRA [Suspect]
     Indication: PSORIATIC ARTHROPATHY
     Route: 058
     Dates: start: 201207
  2. MOBIC [Concomitant]
     Indication: ARTHRITIS
     Dosage: AT BEDTIME
  3. ULTRACET [Concomitant]
     Indication: ARTHRITIS
     Dosage: AT BEDTIME
     Route: 048
  4. UNKNOWN CREAMS [Concomitant]
     Indication: PSORIASIS
     Route: 061
  5. NEURONTIN [Concomitant]
     Indication: ARTHRITIS
     Dosage: AT BEDTIME
     Route: 048
  6. DIOVAN [Concomitant]
     Indication: HYPERTENSION
     Dosage: DAILY
     Route: 048
  7. CRESTOR [Concomitant]
     Indication: HYPERCHOLESTEROLAEMIA
     Dosage: DAILY
     Route: 048
  8. VITAMINS [Concomitant]
     Indication: PRODUCT USED FOR UNKNOWN INDICATION
     Route: 048
  9. ASPIRIN [Concomitant]
     Indication: PRODUCT USED FOR UNKNOWN INDICATION
     Route: 048
  10. OMEGA 3 [Concomitant]
     Indication: PRODUCT USED FOR UNKNOWN INDICATION
     Route: 048
  11. ALEVE [Concomitant]
     Indication: PRODUCT USED FOR UNKNOWN INDICATION
     Dosage: IN THE MORNING
     Route: 048

REACTIONS (1)
  - Medication error [Not Recovered/Not Resolved]
